FAERS Safety Report 7646656-1 (Version None)
Quarter: 2011Q3

REPORT INFORMATION
  Report Type: 
  Country: None (occurrence: None)
  Receive Date: 20110801
  Receipt Date: 20090331
  Transmission Date: 20111222
  Serious: Yes (Other)
  Sender: FDA-Public Use
  Company Number: US-BAYER-200910773NA

PATIENT
  Age: 48 Year
  Sex: Female
  Weight: 48 kg

DRUGS (28)
  1. OMNISCAN [Suspect]
     Dosage: UNK
     Dates: start: 20050726
  2. OMNISCAN [Suspect]
     Dosage: UNK
     Dates: start: 20041115
  3. SENSIPAR [Concomitant]
  4. PROCARDIA [Concomitant]
  5. MAGNEVIST [Suspect]
     Indication: NUCLEAR MAGNETIC RESONANCE IMAGING
     Dates: start: 20010118, end: 20010118
  6. OMNISCAN [Suspect]
     Indication: NUCLEAR MAGNETIC RESONANCE IMAGING
     Dates: start: 20000522, end: 20000522
  7. OMNISCAN [Suspect]
     Dates: start: 20000808, end: 20000808
  8. DEXAMETHASONE [Concomitant]
  9. OMNISCAN [Suspect]
     Dates: start: 20010227, end: 20010227
  10. OMNISCAN [Suspect]
     Dosage: UNK
     Dates: start: 20040517
  11. METOPROLOL TARTRATE [Concomitant]
  12. THALIDOMIDE [Concomitant]
  13. LABETALOL HCL [Concomitant]
  14. DILANTIN [Concomitant]
  15. OMNISCAN [Suspect]
     Route: 042
     Dates: start: 20010731, end: 20010731
  16. NORMODYNE [Concomitant]
  17. TENEX [Concomitant]
  18. RENAGEL [Concomitant]
  19. ZOLOFT [Concomitant]
  20. OMNISCAN [Suspect]
     Dates: start: 20031110, end: 20031110
  21. NIFEDIPINE [Concomitant]
  22. OMNISCAN [Suspect]
     Dates: start: 20010521, end: 20010521
  23. SYNTHROID [Concomitant]
  24. CLONIDINE [Concomitant]
  25. NEURONTIN [Concomitant]
  26. PAXIL CR [Concomitant]
  27. CATAPRES-TTS-2 [Concomitant]
  28. EPOGEN [Concomitant]

REACTIONS (12)
  - BONE PAIN [None]
  - MOBILITY DECREASED [None]
  - SKIN LESION [None]
  - EMOTIONAL DISTRESS [None]
  - SCAR [None]
  - ANHEDONIA [None]
  - EXTREMITY CONTRACTURE [None]
  - FIBROSIS [None]
  - ANXIETY [None]
  - PAIN [None]
  - GENERAL PHYSICAL HEALTH DETERIORATION [None]
  - NEPHROGENIC SYSTEMIC FIBROSIS [None]
